FAERS Safety Report 25036598 (Version 1)
Quarter: 2025Q1

REPORT INFORMATION
  Report Type: Report from Study
  Country: US (occurrence: US)
  Receive Date: 20250304
  Receipt Date: 20250304
  Transmission Date: 20250408
  Serious: Yes (Life-Threatening, Hospitalization)
  Sender: CHIESI
  Company Number: US-CHIESI-2025CHF01365

PATIENT
  Sex: Male

DRUGS (1)
  1. LOMITAPIDE [Suspect]
     Active Substance: LOMITAPIDE
     Indication: Type IIa hyperlipidaemia
     Route: 048

REACTIONS (1)
  - Myocardial infarction [Unknown]
